FAERS Safety Report 10987639 (Version 2)
Quarter: 2015Q2

REPORT INFORMATION
  Report Type: Spontaneous
  Country: US (occurrence: US)
  Receive Date: 20150404
  Receipt Date: 20150525
  Transmission Date: 20150821
  Serious: Yes (Other)
  Sender: FDA-Public Use
  Company Number: US-JNJFOC-20130913252

PATIENT
  Age: 62 Year
  Sex: Male

DRUGS (4)
  1. INFLIXIMAB, RECOMBINANT [Suspect]
     Active Substance: INFLIXIMAB
     Indication: CROHN^S DISEASE
     Dosage: DOSE 600 MG
     Route: 042
     Dates: start: 201107
  2. INFLIXIMAB, RECOMBINANT [Suspect]
     Active Substance: INFLIXIMAB
     Indication: CROHN^S DISEASE
     Dosage: DOSE 300 MG
     Route: 042
     Dates: start: 200802
  3. INFLIXIMAB, RECOMBINANT [Suspect]
     Active Substance: INFLIXIMAB
     Indication: SPONDYLITIS
     Dosage: DOSE 600 MG
     Route: 042
     Dates: start: 201107
  4. INFLIXIMAB, RECOMBINANT [Suspect]
     Active Substance: INFLIXIMAB
     Indication: SPONDYLITIS
     Dosage: DOSE 300 MG
     Route: 042
     Dates: start: 200802

REACTIONS (3)
  - Psoriasis [Recovered/Resolved]
  - Condition aggravated [Unknown]
  - Guttate psoriasis [Recovered/Resolved]

NARRATIVE: CASE EVENT DATE: 201107
